FAERS Safety Report 7025813-1 (Version None)
Quarter: 2010Q4

REPORT INFORMATION
  Report Type: 
  Country: None (occurrence: None)
  Receive Date: 20101004
  Receipt Date: 20100924
  Transmission Date: 20110411
  Serious: Yes (Hospitalization)
  Sender: FDA-Public Use
  Company Number: US-BIOGENIDEC-2010BI033530

PATIENT
  Age: 60 Year
  Sex: Female

DRUGS (1)
  1. AVONEX [Suspect]
     Indication: MULTIPLE SCLEROSIS
     Route: 030
     Dates: start: 20060522

REACTIONS (5)
  - ABDOMINAL PAIN [None]
  - FLUID RETENTION [None]
  - NEPHROLITHIASIS [None]
  - PNEUMONIA [None]
  - PYREXIA [None]
